FAERS Safety Report 7802792-8 (Version None)
Quarter: 2011Q4

REPORT INFORMATION
  Report Type: 
  Country: None (occurrence: None)
  Receive Date: 20111007
  Receipt Date: 20110930
  Transmission Date: 20120403
  Serious: Yes (Other)
  Sender: FDA-Public Use
  Company Number: US-PFIZER INC-2011179779

PATIENT
  Sex: Female
  Weight: 55.329 kg

DRUGS (4)
  1. PHOSPHOLINE IODIDE [Suspect]
     Indication: GLAUCOMA
     Dosage: 0.125
  2. PHOSPHOLINE IODIDE [Suspect]
     Dosage: UNK
     Dates: start: 20110101
  3. LUMIGAN [Concomitant]
     Indication: GLAUCOMA
     Dosage: 0.01 %, DAILY
  4. TIMOLOL [Concomitant]
     Indication: GLAUCOMA
     Dosage: 0.5 %, DAILY

REACTIONS (1)
  - INTRAOCULAR PRESSURE INCREASED [None]
